FAERS Safety Report 10329025 (Version 1)
Quarter: 2014Q3

REPORT INFORMATION
  Report Type: Spontaneous
  Country: IT (occurrence: None)
  Receive Date: 20140717
  Receipt Date: 20140717
  Transmission Date: 20150326
  Serious: Yes (Hospitalization)
  Sender: FDA-Public Use
  Company Number: AUR-APL-2014-07511

PATIENT
  Age: 67 Year
  Sex: Female

DRUGS (4)
  1. AMOXICILLIN TABLET (AMOXICILLIN) TABLET [Suspect]
     Active Substance: AMOXICILLIN
     Indication: BRONCHOPNEUMONIA
     Route: 048
     Dates: start: 20140126, end: 20140128
  2. GROTON (CHLORTALIDONE) [Concomitant]
  3. SIVASTIN (SIMVASTATIN) [Concomitant]
  4. EUTIROX (LEVOTHYROXINE SODIUM) [Concomitant]
     Active Substance: LEVOTHYROXINE SODIUM

REACTIONS (5)
  - Rash erythematous [None]
  - Paraesthesia oral [None]
  - Urticaria [None]
  - Swelling face [None]
  - Formication [None]

NARRATIVE: CASE EVENT DATE: 20140128
